FAERS Safety Report 24584403 (Version 1)
Quarter: 2024Q4

REPORT INFORMATION
  Report Type: Spontaneous
  Country: US (occurrence: None)
  Receive Date: 20241105
  Receipt Date: 20241105
  Transmission Date: 20250115
  Serious: No
  Sender: Public
  Company Number: None

PATIENT
  Age: 60 Year
  Sex: Female
  Weight: 58.97 kg

DRUGS (3)
  1. ONDANSETRON [Suspect]
     Active Substance: ONDANSETRON
     Indication: Colonoscopy
     Dosage: OTHER QUANTITY : 2 BEFORE PREP THEN1 EVERY 4 HOURS;?OTHER FREQUENCY : UNTIL GOINE ;?
     Route: 048
     Dates: start: 20240814, end: 20240814
  2. Dulara [Concomitant]
  3. EXCEDRIN [Concomitant]
     Active Substance: ACETAMINOPHEN\ASPIRIN\CAFFEINE

REACTIONS (3)
  - Vomiting [None]
  - Headache [None]
  - Hallucination [None]

NARRATIVE: CASE EVENT DATE: 20240814
